FAERS Safety Report 7510146-7 (Version None)
Quarter: 2011Q2

REPORT INFORMATION
  Report Type: 
  Country: None (occurrence: None)
  Receive Date: 20110527
  Receipt Date: 20110524
  Transmission Date: 20111010
  Serious: Yes (Other)
  Sender: FDA-Public Use
  Company Number: GR-PFIZER INC-2011112435

PATIENT
  Age: 42 Year
  Sex: Male

DRUGS (2)
  1. METHIMAZOLE [Concomitant]
  2. METHYLPEDNISOLONE SODIUM SUCCINATE [Suspect]
     Indication: BASEDOW'S DISEASE
     Dosage: UNK
     Route: 042

REACTIONS (2)
  - PARALYSIS [None]
  - HYPOKALAEMIA [None]
